FAERS Safety Report 12685436 (Version 2)
Quarter: 2016Q3

REPORT INFORMATION
  Report Type: Spontaneous
  Country: JP (occurrence: JP)
  Receive Date: 20160825
  Receipt Date: 20160916
  Transmission Date: 20161109
  Serious: Yes (Other)
  Sender: FDA-Public Use
  Company Number: JP-PFIZER INC-2016396663

PATIENT
  Age: 66 Year
  Sex: Female

DRUGS (3)
  1. VALTREX [Suspect]
     Active Substance: VALACYCLOVIR HYDROCHLORIDE
     Indication: HERPES ZOSTER
     Dosage: 3 G/DAY
     Route: 048
  2. LOXOPROFEN NA [Concomitant]
     Active Substance: LOXOPROFEN SODIUM
     Indication: PAIN
     Dosage: 60 MG, AS NEEDED
     Route: 048
  3. ZOSYN [Suspect]
     Active Substance: PIPERACILLIN SODIUM\TAZOBACTAM SODIUM
     Dosage: 3 VIALS/DAY
     Route: 042

REACTIONS (3)
  - Acute kidney injury [Unknown]
  - Altered state of consciousness [Recovering/Resolving]
  - Herpes zoster [Unknown]
